FAERS Safety Report 4621805-8 (Version None)
Quarter: 2005Q1

REPORT INFORMATION
  Report Type: 
  Country: None (occurrence: None)
  Receive Date: 20050329
  Receipt Date: 20050309
  Transmission Date: 20050727
  Serious: Yes (Hospitalization, Disabling)
  Sender: FDA-Public Use
  Company Number: DE-ROCHE-398009

PATIENT
  Age: 54 Year
  Sex: Female

DRUGS (6)
  1. CAPECITABINE [Suspect]
     Indication: BREAST CANCER
     Dosage: TWO WEEKS TREATMENT FOLLOWED BY ONE WEEK REST.
     Route: 048
  2. VINORELBINE TARTRATE [Suspect]
     Indication: BREAST CANCER
     Route: 042
  3. FORTECORTIN [Concomitant]
  4. RANITIDINE [Concomitant]
     Dosage: DOSAGE REGIMEN WAS REPORTED AS 2 X 1 / D.
  5. KEVATRIL [Concomitant]
  6. METOPROLOL TARTRATE [Concomitant]

REACTIONS (3)
  - CEREBRAL INFARCTION [None]
  - HEMIANOPIA HOMONYMOUS [None]
  - REFUSAL OF EXAMINATION [None]
